FAERS Safety Report 25629927 (Version 1)
Quarter: 2025Q3

REPORT INFORMATION
  Report Type: Report from Study
  Country: US (occurrence: US)
  Receive Date: 20250731
  Receipt Date: 20250731
  Transmission Date: 20251020
  Serious: Yes (Hospitalization)
  Sender: JAZZ
  Company Number: US-JAZZ PHARMACEUTICALS-2025-US-018600

PATIENT
  Sex: Male

DRUGS (2)
  1. EPIDIOLEX [Suspect]
     Active Substance: CANNABIDIOL
     Indication: Idiopathic generalised epilepsy
     Dosage: 4 MILLILITER, BID
     Dates: start: 202404
  2. EPIDIOLEX [Suspect]
     Active Substance: CANNABIDIOL
     Indication: Language disorder

REACTIONS (2)
  - Hospitalisation [Unknown]
  - Off label use [Unknown]
